FAERS Safety Report 8317833-1 (Version None)
Quarter: 2012Q2

REPORT INFORMATION
  Report Type: 
  Country: None (occurrence: None)
  Receive Date: 20120427
  Receipt Date: 20120419
  Transmission Date: 20120825
  Serious: Yes (Hospitalization)
  Sender: FDA-Public Use
  Company Number: NL-B.I. PHARMACEUTICALS,INC./RIDGEFIELD-2012-NL-00171NL

PATIENT
  Age: 72 Year
  Sex: Male

DRUGS (12)
  1. PERINDOPRIL [Concomitant]
     Indication: CARDIAC FAILURE
  2. ETORICOXIB [Concomitant]
     Indication: PAIN
  3. SIMVASTATIN [Concomitant]
     Indication: HYPERCHOLESTEROLAEMIA
  4. NITROGLYCERIN [Concomitant]
     Indication: CARDIAC FAILURE
     Dosage: FORMULATION: SPRAY
  5. ISOSORBIDE DINITRATE [Concomitant]
     Indication: CARDIAC FAILURE
  6. PHENPROCOUMON [Concomitant]
     Indication: ATRIAL FIBRILLATION
  7. LOSARTAN POTASSIUM [Concomitant]
     Indication: HYPERTENSION
  8. PHENPROCOUMON [Concomitant]
     Indication: CARDIAC FAILURE
  9. SPIRIVA [Suspect]
     Indication: CHRONIC OBSTRUCTIVE PULMONARY DISEASE
     Dosage: 18 MCG
  10. FLECAINIDE ACETATE [Concomitant]
     Indication: ATRIAL FIBRILLATION
  11. METOPROLOL TARTRATE [Concomitant]
     Indication: HYPERTENSION
  12. PERINDOPRIL [Concomitant]
     Indication: HYPERTENSION

REACTIONS (1)
  - MYOCARDIAL INFARCTION [None]
